FAERS Safety Report 5533416-0 (Version None)
Quarter: 2007Q4

REPORT INFORMATION
  Report Type: 
  Country: None (occurrence: None)
  Receive Date: 20071204
  Receipt Date: 20071128
  Transmission Date: 20080405
  Serious: Yes (Death)
  Sender: FDA-Public Use
  Company Number: CA-ASTRAZENECA-2007AC02325

PATIENT
  Age: 36 Year
  Sex: Male

DRUGS (5)
  1. QUETIAPINE FUMARATE [Suspect]
     Dosage: 1000 MG TAKEN AT BEDTIME
  2. ZUCLOPENTHIXOL [Suspect]
     Dosage: 20 MG TAKEN AT BEDTIME.
  3. BENZTROPINE [Suspect]
     Dosage: TAKEN AT BEDTIME.
  4. CARBAMAZEPINE [Concomitant]
  5. LEVOTHYROXINE SODIUM [Concomitant]

REACTIONS (1)
  - HEAT STROKE [None]
